FAERS Safety Report 19520286 (Version 1)
Quarter: 2021Q3

REPORT INFORMATION
  Report Type: Spontaneous
  Country: FR (occurrence: FR)
  Receive Date: 20210712
  Receipt Date: 20210712
  Transmission Date: 20211014
  Serious: Yes (Other)
  Sender: FDA-Public Use
  Company Number: FR-MYLANLABS-2021M1039862

PATIENT
  Age: 48 Year
  Sex: Male
  Weight: 104 kg

DRUGS (3)
  1. OLANZAPINE. [Suspect]
     Active Substance: OLANZAPINE
     Indication: MIXED ANXIETY AND DEPRESSIVE DISORDER
     Dosage: 5 MILLIGRAM, QD
     Route: 048
     Dates: end: 20210222
  2. PRAZEPAM [Concomitant]
     Active Substance: PRAZEPAM
     Dosage: UNK
  3. CLOMIP [Concomitant]
     Dosage: UNK

REACTIONS (3)
  - Hepatic cytolysis [Recovering/Resolving]
  - Off label use [Unknown]
  - Weight increased [Not Recovered/Not Resolved]

NARRATIVE: CASE EVENT DATE: 202008
